FAERS Safety Report 14347730 (Version 1)
Quarter: 2018Q1

REPORT INFORMATION
  Report Type: Spontaneous
  Country: US (occurrence: US)
  Receive Date: 20180103
  Receipt Date: 20180103
  Transmission Date: 20180509
  Serious: No
  Sender: FDA-Public Use
  Company Number: US-PFIZER INC-2017554883

PATIENT
  Age: 6 Year
  Sex: Male
  Weight: 20.87 kg

DRUGS (1)
  1. METHYLPHENIDATE HYDROCHLORIDE. [Suspect]
     Active Substance: METHYLPHENIDATE HYDROCHLORIDE
     Dosage: UNK

REACTIONS (4)
  - Blood pressure fluctuation [Unknown]
  - Hypophagia [Unknown]
  - Weight decreased [Unknown]
  - Insomnia [Unknown]
